FAERS Safety Report 5150999-3 (Version None)
Quarter: 2006Q4

REPORT INFORMATION
  Report Type: 
  Country: None (occurrence: None)
  Receive Date: 20061108
  Receipt Date: 20061025
  Transmission Date: 20070319
  Serious: Yes (Life-Threatening, Hospitalization, Other)
  Sender: FDA-Public Use
  Company Number: GB-2006-017369

PATIENT
  Age: 76 Year
  Sex: Male
  Weight: 68.7 kg

DRUGS (6)
  1. QUADRAMET [Suspect]
     Indication: PROSTATE CANCER
     Dosage: 2542 MBQ, 1 DOSE, INTRAVENOUS
     Route: 042
     Dates: start: 20060615, end: 20060615
  2. ADALAT [Concomitant]
  3. DIETHYLSTILBESTROL [Concomitant]
  4. OMEPRAZOLE [Concomitant]
  5. AMLODIPINE [Concomitant]
  6. TRAMADOL HCL [Concomitant]

REACTIONS (15)
  - ACUTE PULMONARY OEDEMA [None]
  - ANXIETY [None]
  - ATRIAL FIBRILLATION [None]
  - BLOOD CREATININE INCREASED [None]
  - BLOOD UREA INCREASED [None]
  - CARDIAC FAILURE CONGESTIVE [None]
  - LEFT VENTRICULAR FAILURE [None]
  - METASTASES TO LUNG [None]
  - MITRAL VALVE INCOMPETENCE [None]
  - MYOCARDIAL INFARCTION [None]
  - PALPITATIONS [None]
  - PANIC ATTACK [None]
  - PERIPHERAL COLDNESS [None]
  - PLEURAL EFFUSION [None]
  - PULMONARY HYPERTENSION [None]
